FAERS Safety Report 7571769-2 (Version None)
Quarter: 2011Q2

REPORT INFORMATION
  Report Type: 
  Country: None (occurrence: None)
  Receive Date: 20110624
  Receipt Date: 20110622
  Transmission Date: 20111010
  Serious: Yes (Other)
  Sender: FDA-Public Use
  Company Number: ES-PFIZER INC-2011137810

PATIENT
  Age: 74 Year
  Sex: Female

DRUGS (5)
  1. VENTOLIN HFA [Concomitant]
     Indication: BRONCHITIS
     Route: 055
  2. LOSARTAN [Concomitant]
     Route: 048
  3. FOSTER 100/6 [Concomitant]
     Route: 055
  4. FUROSEMIDE [Concomitant]
     Indication: OEDEMA PERIPHERAL
     Route: 048
  5. LYRICA [Suspect]
     Dosage: 75 MG, 1X/DAY
     Dates: start: 20110201, end: 20110301

REACTIONS (2)
  - GLOSSITIS [None]
  - PALPITATIONS [None]
